FAERS Safety Report 14199337 (Version 3)
Quarter: 2018Q1

REPORT INFORMATION
  Report Type: Spontaneous
  Country: US (occurrence: US)
  Receive Date: 20171117
  Receipt Date: 20180109
  Transmission Date: 20180508
  Serious: Yes (Other)
  Sender: FDA-Public Use
  Company Number: US-AMGEN-USASP2017171189

PATIENT
  Age: 53 Year
  Sex: Female
  Weight: 89.8 kg

DRUGS (1)
  1. ENBREL [Suspect]
     Active Substance: ETANERCEPT
     Indication: RHEUMATOID ARTHRITIS
     Dosage: 50 MG, QWK
     Route: 058
     Dates: start: 201701

REACTIONS (7)
  - Anal incontinence [Unknown]
  - Weight decreased [Unknown]
  - Decreased appetite [Unknown]
  - Rheumatoid arthritis [Not Recovered/Not Resolved]
  - Diarrhoea [Unknown]
  - Carpal tunnel syndrome [Unknown]
  - Urinary tract infection [Not Recovered/Not Resolved]

NARRATIVE: CASE EVENT DATE: 201701
